FAERS Safety Report 9299905 (Version 1)
Quarter: 2013Q1

REPORT INFORMATION
  Report Type: Spontaneous
  Country: US (occurrence: None)
  Receive Date: 20121227
  Receipt Date: 20121227
  Transmission Date: 20140127
  Serious: No
  Sender: FDA-Public Use
  Company Number: PHEH2012US023205

PATIENT
  Age: 63 Year
  Sex: Female
  Weight: 70.3 kg

DRUGS (5)
  1. AFINITOR [Suspect]
     Indication: BREAST CANCER
     Route: 048
  2. EXEMESTANE (EXEMESTANE) [Concomitant]
  3. AMLODIPINE BENAZEPRIL (AMLODIPINE BESILTEM BENZAPRIL HYDROCHLRIDE) [Concomitant]
  4. LEVOTHHYROXIN (LEVOTHYROXINE SODIUM) [Concomitant]
  5. MULTIVITAMIN (ASCORBBIC ACID, CALCIUM PANTHOTHENATE,ERGOCALCIFEROL, NICOTINAMIDE, PYRIDOXINE  HYDROCHLORIDE, RETINOL, RIBOFLAVIN, THIAMIN HYDROCHLORIDE [Concomitant]

REACTIONS (1)
  - Oral pain [None]
